FAERS Safety Report 4693679-0 (Version None)
Quarter: 2005Q2

REPORT INFORMATION
  Report Type: 
  Country: None (occurrence: None)
  Receive Date: 20050615
  Receipt Date: 20050602
  Transmission Date: 20051028
  Serious: Yes (Death)
  Sender: FDA-Public Use
  Company Number: 2005084660

PATIENT
  Age: 81 Year
  Sex: Female
  Weight: 41.2773 kg

DRUGS (2)
  1. CELEBREX [Suspect]
     Indication: ILL-DEFINED DISORDER
     Dosage: 200 MG (100 MG, 2 IN 1 D)
     Dates: start: 20041223, end: 20050204
  2. NORVASC [Concomitant]

REACTIONS (1)
  - LOBAR PNEUMONIA [None]
